FAERS Safety Report 9546508 (Version 1)
Quarter: 2013Q3

REPORT INFORMATION
  Report Type: Report from Study
  Country: ES (occurrence: ES)
  Receive Date: 20130923
  Receipt Date: 20130923
  Transmission Date: 20140515
  Serious: Yes (Other)
  Sender: FDA-Public Use
  Company Number: PHHY2012ES129302

PATIENT
  Age: 67 Year
  Sex: Female

DRUGS (1)
  1. EXFORGE [Suspect]
     Dosage: UNK
     Route: 048

REACTIONS (3)
  - Head injury [Unknown]
  - Headache [Unknown]
  - Fall [Unknown]
